FAERS Safety Report 6861559-8 (Version None)
Quarter: 2010Q3

REPORT INFORMATION
  Report Type: 
  Country: None (occurrence: None)
  Receive Date: 20100721
  Receipt Date: 20100713
  Transmission Date: 20110219
  Serious: Yes (Life-Threatening)
  Sender: FDA-Public Use
  Company Number: JP-BAYER-201013164BYL

PATIENT
  Age: 62 Year
  Sex: Female
  Weight: 43 kg

DRUGS (3)
  1. NEXAVAR [Suspect]
     Indication: RENAL CELL CARCINOMA
     Dosage: UNIT DOSE: 200 MG
     Route: 048
     Dates: start: 20100608, end: 20100618
  2. INTERFERON [Concomitant]
     Route: 065
  3. SUMIFERON [Concomitant]
     Indication: RENAL CELL CARCINOMA
     Dosage: TOTAL DAILY DOSE: 3 MIU
     Route: 030
     Dates: start: 20060301, end: 20100616

REACTIONS (1)
  - STEVENS-JOHNSON SYNDROME [None]
